FAERS Safety Report 8819957 (Version 1)
Quarter: 2012Q4

REPORT INFORMATION
  Report Type: 
  Country: US (occurrence: US)
  Receive Date: 20121001
  Receipt Date: 20121001
  Transmission Date: 20130627
  Serious: No
  Sender: FDA-Public Use
  Company Number: US-VERTEX PHARMACEUTICAL INC.-AE-2012-004330

PATIENT
  Age: 57 Year
  Sex: Female
  Weight: 72.27 kg

DRUGS (14)
  1. INCIVEK [Suspect]
     Indication: HEPATITIS C
     Route: 048
     Dates: start: 20120324
  2. PEGASYS [Suspect]
     Indication: HEPATITIS C
     Route: 058
     Dates: start: 20120324
  3. RIBAVIRIN [Suspect]
     Indication: HEPATITIS C
     Dates: start: 20120324
  4. MULTIVITAMIN                       /00097801/ [Concomitant]
  5. VIT D [Concomitant]
     Dosage: 1000 ut, UNK
  6. COD LIVER OIL [Concomitant]
  7. ZYRTEC [Concomitant]
     Dosage: 5 mg, UNK
  8. ATARAX                             /00058401/ [Concomitant]
     Dosage: UNK
  9. CALCIUM [Concomitant]
  10. BIOTIN [Concomitant]
  11. VITAMIN E                          /00110501/ [Concomitant]
  12. VOLTAREN                           /00372301/ [Concomitant]
  13. FLEXERIL                           /00428402/ [Concomitant]
     Dosage: 10 mg, UNK
  14. TRAMADOL /00599202/ [Concomitant]
     Dosage: 50 mg, UNK

REACTIONS (11)
  - Incorrect dose administered [Recovered/Resolved]
  - White blood cell count decreased [Unknown]
  - Arthralgia [Not Recovered/Not Resolved]
  - Headache [Unknown]
  - Insomnia [Unknown]
  - Flatulence [Not Recovered/Not Resolved]
  - Asthenia [Unknown]
  - Fatigue [Unknown]
  - Rash pruritic [Unknown]
  - Dysgeusia [Not Recovered/Not Resolved]
  - Vomiting [Unknown]
